FAERS Safety Report 22084785 (Version 3)
Quarter: 2023Q4

REPORT INFORMATION
  Report Type: Spontaneous
  Country: US (occurrence: US)
  Receive Date: 20230310
  Receipt Date: 20231026
  Transmission Date: 20240109
  Serious: No
  Sender: FDA-Public Use
  Company Number: US-PFIZER INC-PV202300043720

PATIENT
  Age: 61 Year
  Sex: Female

DRUGS (1)
  1. XELJANZ XR [Suspect]
     Active Substance: TOFACITINIB CITRATE
     Dosage: 11 MG

REACTIONS (7)
  - Headache [Unknown]
  - Arthralgia [Unknown]
  - Swelling [Unknown]
  - Migraine [Unknown]
  - Therapeutic product effect decreased [Unknown]
  - Asthenia [Unknown]
  - Condition aggravated [Unknown]
